FAERS Safety Report 16705472 (Version 1)
Quarter: 2019Q4

REPORT INFORMATION
  Report Type: Spontaneous
  Country: US (occurrence: US)
  Receive Date: 20190814
  Receipt Date: 20190814
  Transmission Date: 20200122
  Serious: Yes (Other)
  Sender: FDA-Public Use
  Company Number: None

PATIENT
  Age: 44 Year
  Sex: Female
  Weight: 66.15 kg

DRUGS (1)
  1. CLEAR EYES MAXIMUM REDNESS RELIEF [Suspect]
     Active Substance: GLYCERIN\NAPHAZOLINE HYDROCHLORIDE

REACTIONS (2)
  - Rash [None]
  - Eye irritation [None]

NARRATIVE: CASE EVENT DATE: 20180805
